FAERS Safety Report 9232733 (Version 1)
Quarter: 2013Q2

REPORT INFORMATION
  Report Type: Spontaneous
  Country: PL (occurrence: PL)
  Receive Date: 20130416
  Receipt Date: 20130416
  Transmission Date: 20140414
  Serious: Yes (Other)
  Sender: FDA-Public Use
  Company Number: PL-RANBAXY-2013RR-67441

PATIENT
  Age: 19 Year
  Sex: Male

DRUGS (13)
  1. OLANZAPINE [Suspect]
     Indication: MENTAL DISORDER
     Dosage: 20 MG/DAY
     Route: 065
  2. RISPERIDONE [Suspect]
     Indication: MENTAL DISORDER
     Dosage: UP TO 2 MG/DAY
     Route: 065
  3. RISPERIDONE [Suspect]
     Indication: MENTAL DISORDER
     Dosage: 6 MG/DAY
     Route: 065
  4. RISPERIDONE [Suspect]
     Indication: MENTAL DISORDER
     Dosage: 3 MG/DAY
     Route: 065
  5. LEVOMEPROMAZINE [Suspect]
     Indication: MENTAL DISORDER
     Dosage: 37.5 MG/DAY
     Route: 065
  6. LEVOMEPROMAZINE [Suspect]
     Indication: MENTAL DISORDER
     Dosage: 25 MG/DAY
     Route: 065
  7. FLUOXETINE [Suspect]
     Indication: MENTAL DISORDER
     Dosage: 30 MG/DAY
     Route: 065
  8. CHLORPROTHIXENE [Suspect]
     Indication: MENTAL DISORDER
     Dosage: 150 MG/DAY
     Route: 065
  9. HALOPERIDOL [Suspect]
     Indication: MENTAL DISORDER
     Dosage: 17 MG/DAY
     Route: 065
  10. VALPROIC ACID [Suspect]
     Indication: MENTAL DISORDER
     Dosage: 1200 MG/DAY
     Route: 065
  11. CARBAMAZEPINE [Suspect]
     Indication: MENTAL DISORDER
     Dosage: 800 MG/DAY
     Route: 065
     Dates: start: 2010
  12. CARBAMAZEPINE [Suspect]
     Indication: MENTAL DISORDER
     Dosage: 300 MG, BID
     Route: 065
  13. LITHIUM CARBONATE [Suspect]
     Indication: MENTAL DISORDER
     Dosage: 750 MG/DAY (250 MG IN THE MORNING AND 500 MG IN THE EVENING)
     Route: 065

REACTIONS (1)
  - Drug ineffective [Unknown]
